FAERS Safety Report 7912255-7 (Version None)
Quarter: 2011Q4

REPORT INFORMATION
  Report Type: 
  Country: None (occurrence: None)
  Receive Date: 20111114
  Receipt Date: 20111103
  Transmission Date: 20120403
  Serious: Yes (Hospitalization, Other)
  Sender: FDA-Public Use
  Company Number: US-MERCK-1106USA02749

PATIENT
  Age: 58 Year
  Sex: Female

DRUGS (4)
  1. EVISTA [Concomitant]
     Indication: OSTEOPENIA
     Route: 065
     Dates: start: 19990701, end: 20020301
  2. ALENDRONATE SODIUM [Suspect]
     Indication: OSTEOPOROSIS
     Route: 048
     Dates: start: 20020701, end: 20100910
  3. FOSAMAX [Suspect]
     Indication: OSTEOPOROSIS
     Route: 048
     Dates: start: 19980101, end: 20020701
  4. FOSAMAX [Suspect]
     Indication: OSTEOPENIA
     Route: 048
     Dates: start: 19980101, end: 20020701

REACTIONS (14)
  - FEMORAL NECK FRACTURE [None]
  - ANXIETY [None]
  - VULVOVAGINAL DRYNESS [None]
  - RECTAL HAEMORRHAGE [None]
  - HYPERTENSION [None]
  - BASAL CELL CARCINOMA [None]
  - BLOOD CHOLESTEROL INCREASED [None]
  - LIMB CRUSHING INJURY [None]
  - BACK PAIN [None]
  - ATROPHY [None]
  - FALL [None]
  - OSTEOARTHRITIS [None]
  - HERPES ZOSTER [None]
  - BREAST DISORDER FEMALE [None]
